FAERS Safety Report 25029661 (Version 3)
Quarter: 2025Q1

REPORT INFORMATION
  Report Type: Spontaneous
  Country: US (occurrence: US)
  Receive Date: 20250303
  Receipt Date: 20250306
  Transmission Date: 20250409
  Serious: Yes (Hospitalization)
  Sender: SANOFI AVENTIS
  Company Number: US-SA-2025SA060069

PATIENT
  Age: 64 Year
  Sex: Female
  Weight: 69.09 kg

DRUGS (1)
  1. DUPIXENT [Suspect]
     Active Substance: DUPILUMAB
     Indication: Asthma
     Dosage: 300MG, QOW
     Route: 058

REACTIONS (3)
  - Influenza [Unknown]
  - Respiration abnormal [Unknown]
  - Product storage error [Unknown]
